FAERS Safety Report 24905136 (Version 2)
Quarter: 2025Q2

REPORT INFORMATION
  Report Type: Report from Study
  Country: US (occurrence: US)
  Receive Date: 20250130
  Receipt Date: 20250414
  Transmission Date: 20250717
  Serious: Yes (Other)
  Sender: ABBVIE
  Company Number: US-ABBVIE-6106895

PATIENT
  Age: 57 Year
  Sex: Female
  Weight: 56 kg

DRUGS (4)
  1. SKYRIZI [Suspect]
     Active Substance: RISANKIZUMAB-RZAA
     Indication: Crohn^s disease
     Dosage: DOSE: 2.4 ML
     Route: 058
     Dates: start: 20240620
  2. DULOXETINE [Concomitant]
     Active Substance: DULOXETINE
     Indication: Depression
     Route: 048
  3. FORTEO [Concomitant]
     Active Substance: TERIPARATIDE
     Indication: Osteoporosis
  4. METHOTREXATE [Concomitant]
     Active Substance: METHOTREXATE
     Indication: Sarcoidosis
     Route: 048

REACTIONS (8)
  - Intervertebral disc degeneration [Recovered/Resolved]
  - Spinal fusion surgery [Recovered/Resolved]
  - Spinal stenosis [Recovering/Resolving]
  - Pain [Recovered/Resolved]
  - Osteoporosis [Recovering/Resolving]
  - Musculoskeletal stiffness [Recovering/Resolving]
  - Joint range of motion decreased [Recovering/Resolving]
  - Osteopenia [Recovering/Resolving]

NARRATIVE: CASE EVENT DATE: 20250108
